FAERS Safety Report 5213125-8 (Version None)
Quarter: 2007Q1

REPORT INFORMATION
  Report Type: 
  Country: None (occurrence: None)
  Receive Date: 20070119
  Receipt Date: 20070111
  Transmission Date: 20070707
  Serious: Yes (Other)
  Sender: FDA-Public Use
  Company Number: MX-ROCHE-478196

PATIENT
  Age: 16 Year
  Weight: 76 kg

DRUGS (1)
  1. XENICAL [Suspect]
     Indication: OVERWEIGHT
     Dosage: DOSAGE REGIMEN REPORTED AS ^TQD^
     Route: 048
     Dates: start: 20061220, end: 20070109

REACTIONS (4)
  - HEADACHE [None]
  - HYPOTENSION [None]
  - NAUSEA [None]
  - VOMITING [None]
